FAERS Safety Report 7782563-1 (Version None)
Quarter: 2011Q3

REPORT INFORMATION
  Report Type: 
  Country: None (occurrence: None)
  Receive Date: 20110927
  Receipt Date: 20110927
  Transmission Date: 20111222
  Serious: Yes (Life-Threatening, Other)
  Sender: FDA-Public Use
  Company Number: None

PATIENT
  Sex: Female
  Weight: 40.8237 kg

DRUGS (1)
  1. BONIVA [Suspect]
     Dosage: 150MG 1/MO. YEARS

REACTIONS (1)
  - OSTEONECROSIS OF JAW [None]
